FAERS Safety Report 6315715-8 (Version None)
Quarter: 2009Q3

REPORT INFORMATION
  Report Type: 
  Country: None (occurrence: None)
  Receive Date: 20090818
  Receipt Date: 20090810
  Transmission Date: 20100115
  Serious: Yes (Hospitalization)
  Sender: FDA-Public Use
  Company Number: DSA_33765_2009

PATIENT
  Sex: Female
  Weight: 46.2669 kg

DRUGS (6)
  1. XENAZINE [Suspect]
     Indication: HUNTINGTON'S CHOREA
     Dosage: (12.5 MG BID ORAL)
     Route: 048
     Dates: start: 20080725, end: 20081201
  2. RISPERDAL [Concomitant]
  3. AMANTADINE HCL [Concomitant]
  4. DITROPAN [Concomitant]
  5. PREVACID [Concomitant]
  6. NAMENDA [Concomitant]

REACTIONS (10)
  - ABNORMAL BEHAVIOUR [None]
  - ANGER [None]
  - DEMENTIA [None]
  - DEPRESSION [None]
  - DISEASE PROGRESSION [None]
  - DISEASE RECURRENCE [None]
  - DRUG EFFECT DECREASED [None]
  - HUNTINGTON'S CHOREA [None]
  - PNEUMONIA [None]
  - SUICIDE ATTEMPT [None]
